FAERS Safety Report 25164023 (Version 1)
Quarter: 2025Q2

REPORT INFORMATION
  Report Type: Spontaneous
  Country: DE (occurrence: DE)
  Receive Date: 20250405
  Receipt Date: 20250405
  Transmission Date: 20250717
  Serious: Yes (Other)
  Sender: AUROBINDO
  Company Number: DE-002147023-NVSC2021DE026298

PATIENT
  Sex: Female

DRUGS (6)
  1. FULVESTRANT [Suspect]
     Active Substance: FULVESTRANT
     Indication: Hormone receptor positive HER2 negative breast cancer
     Route: 030
     Dates: start: 20200131
  2. RIBOCICLIB [Suspect]
     Active Substance: RIBOCICLIB
     Indication: Hormone receptor positive HER2 negative breast cancer
     Dosage: 400 MILLIGRAM, ONCE A DAY [400 MG, QD (SCHEME 21 DAYS INTAKE, 7 DAYS PAUSE)]
     Route: 048
     Dates: start: 20200119, end: 20200214
  3. RIBOCICLIB [Suspect]
     Active Substance: RIBOCICLIB
     Dosage: 400 MILLIGRAM, ONCE A DAY [400 MG, QD (SCHEME 21 DAYS INTAKE, 7 DAYS PAUSE)]
     Route: 048
     Dates: start: 20200220, end: 20200805
  4. RIBOCICLIB [Suspect]
     Active Substance: RIBOCICLIB
     Dosage: 200 MILLIGRAM, ONCE A DAY [200 MG, QD (SCHEME 21 DAYS INTAKE, 7  DAYS PAUSE)]
     Route: 048
     Dates: start: 20200806, end: 20200901
  5. RIBOCICLIB [Suspect]
     Active Substance: RIBOCICLIB
     Dosage: 400 MILLIGRAM, ONCE A DAY [400 MG, QD (SCHEME 21 DAYS INTAKE, 7  DAYS PAUSE)]
     Route: 048
     Dates: start: 20200901, end: 20220404
  6. RIBOCICLIB [Suspect]
     Active Substance: RIBOCICLIB
     Dosage: 400 MILLIGRAM, ONCE A DAY [400 MG, QD (SCHEME 21 DAYS INTAKE, 7  DAYS PAUSE)]
     Route: 048
     Dates: start: 20220405

REACTIONS (1)
  - Diverticulitis [Recovered/Resolved]

NARRATIVE: CASE EVENT DATE: 20201127
